FAERS Safety Report 17757312 (Version 1)
Quarter: 2020Q2

REPORT INFORMATION
  Report Type: Spontaneous
  Country: US (occurrence: US)
  Receive Date: 20200507
  Receipt Date: 20200507
  Transmission Date: 20200714
  Serious: No
  Sender: FDA-Public Use
  Company Number: US-AMNEAL PHARMACEUTICALS-2019AMN00569

PATIENT

DRUGS (6)
  1. TRAZODONE [Concomitant]
     Active Substance: TRAZODONE HYDROCHLORIDE
     Indication: SLEEP DISORDER
     Dosage: UNK (1-2 TABLETS AT NIGHT)
     Route: 065
  2. IBUPROFEN. [Concomitant]
     Active Substance: IBUPROFEN
     Indication: HEADACHE
  3. IBUPROFEN. [Concomitant]
     Active Substance: IBUPROFEN
     Indication: PAIN
     Dosage: 800 MG, AS NEEDED
     Route: 065
  4. DICLOFENAC SODIUM. [Suspect]
     Active Substance: DICLOFENAC SODIUM
     Indication: MUSCULOSKELETAL PAIN
     Dosage: 2 G, 4X/DAY
     Route: 061
     Dates: start: 201902
  5. METOPROLOL. [Concomitant]
     Active Substance: METOPROLOL
     Indication: BLOOD PRESSURE MANAGEMENT
     Dosage: 50 MG, 1X/DAY
     Route: 065
  6. CELEXA [Concomitant]
     Active Substance: CITALOPRAM HYDROBROMIDE
     Indication: DEPRESSION
     Dosage: 40 MG, 1X/DAY
     Route: 065

REACTIONS (1)
  - Joint stiffness [Not Recovered/Not Resolved]

NARRATIVE: CASE EVENT DATE: 201902
